FAERS Safety Report 24225873 (Version 3)
Quarter: 2024Q4

REPORT INFORMATION
  Report Type: Report from Study
  Country: US (occurrence: US)
  Receive Date: 20240820
  Receipt Date: 20241113
  Transmission Date: 20250115
  Serious: Yes (Hospitalization, Other)
  Sender: NOVARTIS
  Company Number: US-002147023-NVSC2024US165957

PATIENT
  Age: 1 Year
  Sex: Female
  Weight: 8 kg

DRUGS (1)
  1. ZOLGENSMA [Suspect]
     Active Substance: ONASEMNOGENE ABEPARVOVEC-XIOI
     Indication: Spinal muscular atrophy
     Dosage: 5 MG, ONCE/SINGLE, (ZOLGENSMA 5.5 ML VIAL X 2 AND 8.3 ML VIAL X 4)
     Route: 042
     Dates: start: 20240725, end: 20240725

REACTIONS (6)
  - Vomiting [Unknown]
  - Hepatitis [Unknown]
  - Crying [Unknown]
  - Platelet count decreased [Unknown]
  - Oxygen saturation decreased [Unknown]
  - Gastritis [Unknown]

NARRATIVE: CASE EVENT DATE: 20240725
